FAERS Safety Report 13613098 (Version 1)
Quarter: 2017Q2

REPORT INFORMATION
  Report Type: Report from Study
  Country: US (occurrence: US)
  Receive Date: 20170605
  Receipt Date: 20170605
  Transmission Date: 20170830
  Serious: Yes (Other)
  Sender: FDA-Public Use
  Company Number: US-GILEAD-2017-0275771

PATIENT
  Age: 63 Year
  Sex: Male

DRUGS (1)
  1. LEDIPASVIR/SOFOSBUVIR [Suspect]
     Active Substance: LEDIPASVIR\SOFOSBUVIR
     Indication: HEPATITIS C
     Route: 065

REACTIONS (6)
  - Hepatocellular carcinoma [Unknown]
  - Hepatitis C [Unknown]
  - Renal failure [Not Recovered/Not Resolved]
  - Drug ineffective [Unknown]
  - Hepatitis cholestatic [Not Recovered/Not Resolved]
  - Liver transplant [Unknown]
